FAERS Safety Report 24256321 (Version 1)
Quarter: 2024Q3

REPORT INFORMATION
  Report Type: Spontaneous
  Country: PL (occurrence: PL)
  Receive Date: 20240828
  Receipt Date: 20240828
  Transmission Date: 20241017
  Serious: Yes (Death, Congenital Anomaly, Other)
  Sender: STRIDES
  Company Number: PL-STRIDES ARCOLAB LIMITED-2024SP010708

PATIENT
  Sex: Female

DRUGS (4)
  1. AMOXICILLIN [Suspect]
     Active Substance: AMOXICILLIN
     Indication: Product used for unknown indication
     Dosage: UNK
     Route: 064
  2. INSULIN NOS [Suspect]
     Active Substance: INSULIN NOS
     Indication: Product used for unknown indication
     Dosage: UNK
     Route: 064
  3. AZITHROMYCIN [Suspect]
     Active Substance: AZITHROMYCIN
     Indication: Product used for unknown indication
     Dosage: UNK
     Route: 064
  4. CEFTRIAXONE [Suspect]
     Active Substance: CEFTRIAXONE\CEFTRIAXONE SODIUM
     Indication: Product used for unknown indication
     Dosage: UNK
     Route: 064

REACTIONS (11)
  - Death [Fatal]
  - Congenital diaphragmatic hernia [Unknown]
  - Atrioventricular septal defect [Unknown]
  - Talipes [Unknown]
  - Congenital scoliosis [Unknown]
  - Oesophageal atresia [Unknown]
  - Caudal regression syndrome [Unknown]
  - Dysmorphism [Unknown]
  - Heterotaxia [Unknown]
  - Renal fusion anomaly [Unknown]
  - Foetal exposure during pregnancy [Unknown]
